FAERS Safety Report 15304073 (Version 1)
Quarter: 2018Q3

REPORT INFORMATION
  Report Type: Spontaneous
  Country: US (occurrence: US)
  Receive Date: 20180809
  Receipt Date: 20180809
  Transmission Date: 20181010
  Serious: Yes (Death)
  Sender: FDA-Public Use
  Company Number: None

PATIENT
  Age: 53 Year
  Sex: Male

DRUGS (10)
  1. FLUCONAZOLE. [Concomitant]
     Active Substance: FLUCONAZOLE
  2. DOXYCYCLINE. [Concomitant]
     Active Substance: DOXYCYCLINE
  3. IBUPROFEN. [Concomitant]
     Active Substance: IBUPROFEN
  4. FERROUS [Concomitant]
     Active Substance: IRON
  5. TIVICAY [Suspect]
     Active Substance: DOLUTEGRAVIR SODIUM
     Indication: HIV TEST
     Route: 048
     Dates: start: 20180221, end: 20180729
  6. GNP STOOL SOFTENER [Concomitant]
  7. ZITHROMAX [Concomitant]
     Active Substance: AZITHROMYCIN DIHYDRATE
  8. BACTRIMFLUCONAZOLEDAPSONE [Concomitant]
  9. TIVICAY DESCOVY [Concomitant]
  10. BITARVY [Concomitant]

REACTIONS (1)
  - Death [None]
